FAERS Safety Report 23296150 (Version 3)
Quarter: 2024Q1

REPORT INFORMATION
  Report Type: Spontaneous
  Country: CN (occurrence: CN)
  Receive Date: 20231214
  Receipt Date: 20240212
  Transmission Date: 20240409
  Serious: No
  Sender: FDA-Public Use
  Company Number: CN-PFIZER INC-202300413970

PATIENT
  Sex: Female

DRUGS (1)
  1. FRAGMIN [Suspect]
     Active Substance: DALTEPARIN SODIUM
     Dosage: 1 DF, DAILY
     Dates: start: 20231108

REACTIONS (3)
  - Incorrect dose administered by device [Unknown]
  - Device issue [Unknown]
  - Poor quality device used [Unknown]
